FAERS Safety Report 5800427-7 (Version None)
Quarter: 2008Q3

REPORT INFORMATION
  Report Type: 
  Country: None (occurrence: None)
  Receive Date: 20080703
  Receipt Date: 20080624
  Transmission Date: 20090109
  Serious: Yes (Other)
  Sender: FDA-Public Use
  Company Number: US-BAYER-200818141NA

PATIENT
  Age: 60 Year
  Sex: Male
  Weight: 68 kg

DRUGS (11)
  1. LEVITRA [Suspect]
     Indication: ERECTILE DYSFUNCTION
     Route: 048
     Dates: start: 20070301
  2. LISINOPRIL [Concomitant]
     Dosage: TOTAL DAILY DOSE: 5 MG
     Route: 048
     Dates: start: 20060101
  3. PLAVIX [Concomitant]
     Dosage: TOTAL DAILY DOSE: 75 MG
     Route: 048
  4. LOPRESSOR [Concomitant]
     Dosage: TOTAL DAILY DOSE: 50 MG
     Route: 048
  5. LIPITOR [Concomitant]
     Dosage: TOTAL DAILY DOSE: 80 MG
     Route: 048
  6. ASPIRIN [Concomitant]
     Dosage: TOTAL DAILY DOSE: 81 MG
     Route: 048
  7. ADVAIR DISKUS 100/50 [Concomitant]
  8. SPIRIVA [Concomitant]
  9. PRESERVISION EYE VITAMIN [Concomitant]
  10. HYDROCHLOROTHIAZIDE [Concomitant]
     Dosage: TOTAL DAILY DOSE: 12.5 MG
     Route: 048
  11. AREDS VITAMINS [Concomitant]

REACTIONS (1)
  - PAPILLOEDEMA [None]
